FAERS Safety Report 10989501 (Version 6)
Quarter: 2018Q2

REPORT INFORMATION
  Report Type: Report from Study
  Country: CA (occurrence: CA)
  Receive Date: 20150406
  Receipt Date: 20180608
  Transmission Date: 20180711
  Serious: Yes (Hospitalization, Other)
  Sender: FDA-Public Use
  Company Number: CA-ROCHE-1137327

PATIENT
  Age: 75 Year
  Sex: Female
  Weight: 54 kg

DRUGS (18)
  1. LEFLUNOMIDE. [Concomitant]
     Active Substance: LEFLUNOMIDE
  2. ACETAMINOPHEN. [Concomitant]
     Active Substance: ACETAMINOPHEN
     Route: 048
     Dates: start: 20120709
  3. METHYLPREDNISOLONE. [Concomitant]
     Active Substance: METHYLPREDNISOLONE
     Indication: PREMEDICATION
     Route: 042
     Dates: start: 20120723, end: 20120723
  4. ALENDRONATE [Concomitant]
     Active Substance: ALENDRONATE SODIUM
  5. METHYLPREDNISOLONE. [Concomitant]
     Active Substance: METHYLPREDNISOLONE
     Route: 042
     Dates: start: 20120709
  6. MYOCHRYSINE [Concomitant]
     Active Substance: GOLD SODIUM THIOMALATE
  7. WARFINE [Concomitant]
  8. RITUXAN [Suspect]
     Active Substance: RITUXIMAB
     Indication: RHEUMATOID ARTHRITIS
     Route: 042
     Dates: start: 20120709
  9. TYLENOL [Suspect]
     Active Substance: ACETAMINOPHEN
     Indication: BACK PAIN
     Route: 065
  10. ACETAMINOPHEN. [Concomitant]
     Active Substance: ACETAMINOPHEN
     Indication: PREMEDICATION
     Route: 048
     Dates: start: 20120723, end: 20120723
  11. RITUXAN [Concomitant]
     Active Substance: RITUXIMAB
     Dosage: 1000 MG/IV/6 MONTHS
     Route: 065
     Dates: start: 20071002
  12. DIPHENHYDRAMINE HCL [Concomitant]
     Active Substance: DIPHENHYDRAMINE HYDROCHLORIDE
     Indication: PREMEDICATION
     Route: 048
     Dates: start: 20120723, end: 20120723
  13. DIPHENHYDRAMINE HCL [Concomitant]
     Active Substance: DIPHENHYDRAMINE HYDROCHLORIDE
     Route: 048
     Dates: start: 20120709
  14. CALCIUM CARBONATE. [Concomitant]
     Active Substance: CALCIUM CARBONATE
  15. RAMIPRIL. [Concomitant]
     Active Substance: RAMIPRIL
  16. PREDNISONE. [Concomitant]
     Active Substance: PREDNISONE
  17. PANTOPRAZOLE [Concomitant]
     Active Substance: PANTOPRAZOLE
  18. IMMUNOGLOBULIN IV [Concomitant]
     Active Substance: HUMAN IMMUNOGLOBULIN G
     Route: 042

REACTIONS (21)
  - Dizziness [Recovered/Resolved]
  - Musculoskeletal stiffness [Unknown]
  - Constipation [Unknown]
  - Limb injury [Recovered/Resolved]
  - White blood cell count increased [Unknown]
  - Paraesthesia [Not Recovered/Not Resolved]
  - Fall [Unknown]
  - Arthralgia [Unknown]
  - Headache [Recovered/Resolved]
  - Spinal pain [Unknown]
  - Neutrophil count increased [Unknown]
  - Balance disorder [Not Recovered/Not Resolved]
  - Pyrexia [Recovered/Resolved]
  - Urinary tract infection [Unknown]
  - Decreased appetite [Unknown]
  - Inflammation [Unknown]
  - Spinal compression fracture [Unknown]
  - Flushing [Recovered/Resolved]
  - Infusion related reaction [Unknown]
  - White blood cells urine positive [Unknown]
  - Joint swelling [Unknown]

NARRATIVE: CASE EVENT DATE: 20120710
